FAERS Safety Report 11292591 (Version 2)
Quarter: 2015Q3

REPORT INFORMATION
  Report Type: Spontaneous
  Country: US (occurrence: US)
  Receive Date: 20150722
  Receipt Date: 20150806
  Transmission Date: 20151125
  Serious: Yes (Other)
  Sender: FDA-Public Use
  Company Number: 2015SP002453

PATIENT
  Age: 75 Year
  Sex: Male
  Weight: 113 kg

DRUGS (3)
  1. XOPENEX [Suspect]
     Active Substance: LEVALBUTEROL HYDROCHLORIDE
     Indication: ASTHMA
     Route: 055
     Dates: start: 20150714, end: 20150714
  2. INSULIN [Concomitant]
     Active Substance: INSULIN NOS
  3. ALL OTHER THERAPEUTIC PRODUCTS [Concomitant]
     Active Substance: UNSPECIFIED INGREDIENT

REACTIONS (7)
  - Lip swelling [Recovered/Resolved]
  - Blood glucose increased [Not Recovered/Not Resolved]
  - Tongue discolouration [Recovered/Resolved]
  - Cough [Recovered/Resolved]
  - Insomnia [Recovering/Resolving]
  - Swollen tongue [Recovered/Resolved]
  - Glossodynia [Recovered/Resolved]

NARRATIVE: CASE EVENT DATE: 20150714
